FAERS Safety Report 17150855 (Version 1)
Quarter: 2019Q4

REPORT INFORMATION
  Report Type: Spontaneous
  Country: US (occurrence: US)
  Receive Date: 20191213
  Receipt Date: 20191213
  Transmission Date: 20200122
  Serious: No
  Sender: FDA-Public Use
  Company Number: US-TEVA-2019-US-1151730

PATIENT
  Sex: Female

DRUGS (1)
  1. AJOVY [Suspect]
     Active Substance: FREMANEZUMAB-VFRM
     Route: 065

REACTIONS (7)
  - Sensation of foreign body [Unknown]
  - Back pain [Unknown]
  - Lymphadenopathy [Unknown]
  - Arthralgia [Recovered/Resolved]
  - Injection site reaction [Unknown]
  - Gait disturbance [Unknown]
  - Thyroid cyst [Unknown]
